FAERS Safety Report 10661468 (Version 1)
Quarter: 2014Q4

REPORT INFORMATION
  Report Type: Spontaneous
  Country: US (occurrence: None)
  Receive Date: 20141217
  Receipt Date: 20141217
  Transmission Date: 20150529
  Serious: No
  Sender: FDA-Public Use
  Company Number: None

PATIENT
  Age: 59 Year
  Sex: Male
  Weight: 113 kg

DRUGS (1)
  1. XARELTO [Suspect]
     Active Substance: RIVAROXABAN
     Indication: DEEP VEIN THROMBOSIS
     Dosage: 1 TAB
     Route: 048
     Dates: start: 20140401, end: 20141001

REACTIONS (4)
  - Deep vein thrombosis [None]
  - Disease recurrence [None]
  - Headache [None]
  - Wrong technique in drug usage process [None]

NARRATIVE: CASE EVENT DATE: 20141020
